FAERS Safety Report 9163401 (Version 2)
Quarter: 2013Q1

REPORT INFORMATION
  Report Type: Spontaneous
  Country: US (occurrence: US)
  Receive Date: 20130314
  Receipt Date: 20130318
  Transmission Date: 20140127
  Serious: No
  Sender: FDA-Public Use
  Company Number: US-VERTEX PHARMACEUTICALS INC.-2013-003482

PATIENT
  Age: 53 Year
  Sex: Male

DRUGS (16)
  1. INCIVEK [Suspect]
     Indication: HEPATITIS C
     Dosage: 750 MG, TID
     Route: 048
     Dates: start: 20130312
  2. RIBAVIRIN [Suspect]
     Indication: HEPATITIS C
     Dosage: 200 MG, UNK
     Dates: start: 20130312
  3. PEGINTERFERON ALFA-2B [Suspect]
     Indication: HEPATITIS C
     Dosage: 80 ?G, UNK
     Dates: start: 20130312
  4. LEVOTHROID [Concomitant]
     Dosage: 100 ?G, UNK
  5. CARVEDILOL [Concomitant]
     Dosage: 25 MG, UNK
  6. LISINOPRIL [Concomitant]
     Dosage: 2.5 MG, UNK
  7. CREON [Concomitant]
     Dosage: 20 DF, UNK
  8. ZOFRAN [Concomitant]
     Dosage: 24 MG, UNK
  9. CELEXA [Concomitant]
     Dosage: 10 MG, UNK
  10. PHOSLO [Concomitant]
     Dosage: 667 MG, UNK
  11. EPOGEN [Concomitant]
     Dosage: 2000/ ML
  12. NEPHROVITE [Concomitant]
  13. VITAMIN D /00107901/ [Concomitant]
  14. NOVOLOG [Concomitant]
  15. ASPIRIN [Concomitant]
     Dosage: 81 MG, UNK
  16. METANX [Concomitant]

REACTIONS (2)
  - Nausea [Not Recovered/Not Resolved]
  - Vomiting [Not Recovered/Not Resolved]
